FAERS Safety Report 18892703 (Version 1)
Quarter: 2021Q1

REPORT INFORMATION
  Report Type: Report from Study
  Country: CA (occurrence: CA)
  Receive Date: 20210215
  Receipt Date: 20210215
  Transmission Date: 20210420
  Serious: Yes (Other)
  Sender: FDA-Public Use
  Company Number: CA-REGENERON PHARMACEUTICALS, INC.-2021-23184

PATIENT

DRUGS (1)
  1. EYLEA [Suspect]
     Active Substance: AFLIBERCEPT
     Indication: DIABETIC RETINAL OEDEMA
     Dosage: RECEIVED UNKNOWN TOTAL NUMBER OF DOSES OF EYLEA
     Dates: start: 20180105

REACTIONS (3)
  - Surgery [Unknown]
  - Impaired work ability [Unknown]
  - Myocardial infarction [Unknown]
